FAERS Safety Report 5575050-2 (Version None)
Quarter: 2007Q4

REPORT INFORMATION
  Report Type: 
  Country: None (occurrence: None)
  Receive Date: 20071221
  Receipt Date: 20071221
  Transmission Date: 20080405
  Serious: No
  Sender: FDA-Public Use
  Company Number: None

PATIENT
  Sex: Female
  Weight: 86.1834 kg

DRUGS (1)
  1. LIPITOR [Suspect]
     Dosage: 40MG 1 A DAY

REACTIONS (11)
  - BLOOD CHOLESTEROL INCREASED [None]
  - CONFUSIONAL STATE [None]
  - DEPRESSED MOOD [None]
  - HYPOAESTHESIA [None]
  - INFLUENZA LIKE ILLNESS [None]
  - LIP SWELLING [None]
  - MENTAL DISORDER [None]
  - MYALGIA [None]
  - NEURALGIA [None]
  - RASH PRURITIC [None]
  - SWOLLEN TONGUE [None]
